FAERS Safety Report 25388526 (Version 1)
Quarter: 2025Q2

REPORT INFORMATION
  Report Type: Report from Study
  Country: US (occurrence: US)
  Receive Date: 20250603
  Receipt Date: 20250603
  Transmission Date: 20250717
  Serious: Yes (Other)
  Sender: ROCHE
  Company Number: US-ROCHE-10000300592

PATIENT
  Age: 76 Year
  Sex: Female

DRUGS (2)
  1. ITOVEBI [Suspect]
     Active Substance: INAVOLISIB
     Indication: Metastases to bone
     Route: 048
  2. ITOVEBI [Suspect]
     Active Substance: INAVOLISIB
     Indication: Breast cancer female

REACTIONS (3)
  - Muscle spasms [Unknown]
  - Lung neoplasm malignant [Unknown]
  - Gait disturbance [Unknown]
